FAERS Safety Report 5685198-X (Version None)
Quarter: 2008Q1

REPORT INFORMATION
  Report Type: 
  Country: None (occurrence: None)
  Receive Date: 20080328
  Receipt Date: 20080318
  Transmission Date: 20080703
  Serious: Yes (Other)
  Sender: FDA-Public Use
  Company Number: US-PFIZER INC-2007071967

PATIENT
  Sex: Male

DRUGS (2)
  1. CHANTIX [Suspect]
     Indication: SMOKING CESSATION THERAPY
  2. PREDNISONE TAB [Suspect]
     Dates: start: 20070101, end: 20070720

REACTIONS (3)
  - BIPOLAR I DISORDER [None]
  - BLOOD PRESSURE INCREASED [None]
  - PHARYNGEAL OEDEMA [None]
